FAERS Safety Report 13048610 (Version 1)
Quarter: 2016Q4

REPORT INFORMATION
  Report Type: Report from Study
  Country: ES (occurrence: ES)
  Receive Date: 20161221
  Receipt Date: 20161221
  Transmission Date: 20170207
  Serious: Yes (Death, Other)
  Sender: FDA-Public Use
  Company Number: ES-ROCHE-1862683

PATIENT
  Sex: Female
  Weight: 64 kg

DRUGS (2)
  1. VEMURAFENIB [Suspect]
     Active Substance: VEMURAFENIB
     Indication: METASTATIC MALIGNANT MELANOMA
     Route: 065
  2. COBIMETINIB [Suspect]
     Active Substance: COBIMETINIB
     Indication: METASTATIC MALIGNANT MELANOMA
     Dosage: DAYS 1-21 EVERY 28 DAYS
     Route: 048
     Dates: start: 20160317, end: 20160628

REACTIONS (3)
  - Photosensitivity reaction [Unknown]
  - Neoplasm progression [Fatal]
  - Treatment failure [Unknown]
